FAERS Safety Report 4750207-9 (Version None)
Quarter: 2005Q3

REPORT INFORMATION
  Report Type: 
  Country: None (occurrence: None)
  Receive Date: 20050818
  Receipt Date: 20050802
  Transmission Date: 20060218
  Serious: Yes (Hospitalization)
  Sender: FDA-Public Use
  Company Number: 216479

PATIENT
  Age: 33 Year
  Sex: Female

DRUGS (13)
  1. XOLAIR [Suspect]
     Indication: ASTHMA
     Dosage: 375 MG
     Dates: start: 20050727
  2. LORTAB (HYDROCORDONE BITARTRATE, ACETAMINOPHEN) [Concomitant]
  3. VALIUM [Concomitant]
  4. ALLEGRA [Concomitant]
  5. ADVAIR DISKUS 100/50 [Concomitant]
  6. SINGULAIR [Concomitant]
  7. FLOVENT [Concomitant]
  8. NEURONTIN [Concomitant]
  9. SOMA [Concomitant]
  10. IBUPROFEN [Concomitant]
  11. ATROVENT NEBULIZER (IPRATROPIUM BROMIDE) [Concomitant]
  12. ALBUTEROL NEBULIZER (ALBUTEROL SULFATE, ALBUTEROL) [Concomitant]
  13. FLONASE [Concomitant]

REACTIONS (3)
  - ASTHENIA [None]
  - CHEST DISCOMFORT [None]
  - CONVULSION [None]
